FAERS Safety Report 16375098 (Version 1)
Quarter: 2019Q2

REPORT INFORMATION
  Report Type: Report from Study
  Country: None (occurrence: BR)
  Receive Date: 20190531
  Receipt Date: 20190531
  Transmission Date: 20190711
  Serious: Yes (Disabling)
  Sender: FDA-Public Use
  Company Number: BR-ABBVIE-19K-020-2671640-00

PATIENT
  Sex: Female

DRUGS (1)
  1. HUMIRA [Suspect]
     Active Substance: ADALIMUMAB
     Indication: PSORIATIC ARTHROPATHY
     Route: 058
     Dates: start: 20180812, end: 201810

REACTIONS (6)
  - Mobility decreased [Recovered/Resolved]
  - Gait disturbance [Unknown]
  - Back pain [Unknown]
  - Bedridden [Recovered/Resolved]
  - Pain [Not Recovered/Not Resolved]
  - Monoplegia [Unknown]
